FAERS Safety Report 5213537-2 (Version None)
Quarter: 2007Q1

REPORT INFORMATION
  Report Type: 
  Country: None (occurrence: None)
  Receive Date: 20070119
  Receipt Date: 20070115
  Transmission Date: 20070707
  Serious: Yes (Death)
  Sender: FDA-Public Use
  Company Number: GB-ROCHE-478479

PATIENT
  Age: 40 Year
  Sex: Female

DRUGS (1)
  1. XELODA [Suspect]
     Indication: DRUG USE FOR UNKNOWN INDICATION
     Route: 065

REACTIONS (1)
  - PANCYTOPENIA [None]
